FAERS Safety Report 5516438-5 (Version None)
Quarter: 2007Q4

REPORT INFORMATION
  Report Type: 
  Country: None (occurrence: None)
  Receive Date: 20071114
  Receipt Date: 20070223
  Transmission Date: 20080405
  Serious: No
  Sender: FDA-Public Use
  Company Number: A0640518A

PATIENT
  Age: 68 Year
  Sex: Female

DRUGS (4)
  1. COMMIT [Suspect]
     Dates: start: 20070219, end: 20070219
  2. KEPPRA [Concomitant]
  3. OXYCODONE HCL [Concomitant]
  4. GABAPENTIN [Concomitant]

REACTIONS (5)
  - CHEST DISCOMFORT [None]
  - DIZZINESS [None]
  - MALAISE [None]
  - NONSPECIFIC REACTION [None]
  - VOMITING [None]
